FAERS Safety Report 9799648 (Version 1)
Quarter: 2014Q1

REPORT INFORMATION
  Report Type: Spontaneous
  Country: US (occurrence: US)
  Receive Date: 20140106
  Receipt Date: 20140106
  Transmission Date: 20141002
  Serious: No
  Sender: FDA-Public Use
  Company Number: US-GILEAD-2010-0032048

PATIENT
  Age: 74 Year
  Sex: Female
  Weight: 73.94 kg

DRUGS (33)
  1. LETAIRIS [Suspect]
     Indication: PULMONARY ARTERIAL HYPERTENSION
     Route: 048
     Dates: start: 20100806
  2. COUMADIN [Concomitant]
  3. NITROGLYCERINE [Concomitant]
  4. BENAZEPRIL [Concomitant]
  5. CARTIA XT [Concomitant]
  6. FUROSEMIDE [Concomitant]
  7. LIPITOR [Concomitant]
  8. ALBUTEROL [Concomitant]
  9. ADVAIR [Concomitant]
  10. PULMICORT [Concomitant]
  11. ATROVENT [Concomitant]
  12. CREON [Concomitant]
  13. GAS-X WITH MAALOX [Concomitant]
  14. ACIPHEX [Concomitant]
  15. DULCOLAX [Concomitant]
  16. LACTULOSE [Concomitant]
  17. PROMETH [Concomitant]
  18. HYDROCODONE [Concomitant]
  19. PHENERGAN-CODEINE [Concomitant]
  20. SYNTHROID [Concomitant]
  21. ACTONEL [Concomitant]
  22. PRIMIDONE [Concomitant]
  23. AUGMENTIN [Concomitant]
  24. ZOVIRAX [Concomitant]
  25. ACYCLOVIR [Concomitant]
  26. CYMBALTA [Concomitant]
  27. LORAZEPAM [Concomitant]
  28. AF-TUSSIN [Concomitant]
  29. KLOR-CON [Concomitant]
  30. FERROUS SULFATE [Concomitant]
  31. VITAMIN D [Concomitant]
  32. VITAMIN C [Concomitant]
  33. SUPER B COMPLEX [Concomitant]

REACTIONS (1)
  - Insomnia [Unknown]
